FAERS Safety Report 5676880-9 (Version None)
Quarter: 2008Q1

REPORT INFORMATION
  Report Type: 
  Country: None (occurrence: None)
  Receive Date: 20080324
  Receipt Date: 20070706
  Transmission Date: 20080703
  Serious: Yes (Other)
  Sender: FDA-Public Use
  Company Number: US-MERCK-0803USA03282

PATIENT
  Age: 41 Year
  Sex: Female

DRUGS (7)
  1. SINGULAIR [Suspect]
     Indication: ASTHMA
     Route: 048
     Dates: start: 20040504, end: 20041206
  2. FLOVENT [Concomitant]
     Route: 048
  3. ADVAIR DISKUS 100/50 [Concomitant]
     Route: 048
     Dates: start: 20000101
  4. FLOVENT [Concomitant]
     Route: 048
  5. SPIRIVA [Concomitant]
     Route: 048
  6. ALBUTEROL [Concomitant]
     Route: 065
  7. PREDNISONE [Concomitant]
     Route: 065

REACTIONS (4)
  - ALLERGIC GRANULOMATOUS ANGIITIS [None]
  - ASTHMA [None]
  - FACIAL PALSY [None]
  - WEIGHT INCREASED [None]
